FAERS Safety Report 16209742 (Version 1)
Quarter: 2019Q2

REPORT INFORMATION
  Report Type: Spontaneous
  Country: US (occurrence: US)
  Receive Date: 20190417
  Receipt Date: 20190417
  Transmission Date: 20190711
  Serious: Yes (Disabling)
  Sender: FDA-Public Use
  Company Number: US-ALVA-AMCO PHARMACAL COMPANIES, INC.-2065986

PATIENT
  Sex: Female

DRUGS (1)
  1. DIUREX MAX [Suspect]
     Active Substance: PAMABROM
     Indication: MENSTRUAL DISCOMFORT
     Route: 048
     Dates: start: 20180501, end: 20180630

REACTIONS (1)
  - Peripheral swelling [Recovering/Resolving]

NARRATIVE: CASE EVENT DATE: 20180704
